FAERS Safety Report 25502125 (Version 1)
Quarter: 2025Q3

REPORT INFORMATION
  Report Type: Spontaneous
  Country: EU (occurrence: EU)
  Receive Date: 20250702
  Receipt Date: 20250702
  Transmission Date: 20251021
  Serious: Yes (Other)
  Sender: AUROBINDO
  Company Number: EU-ELI_LILLY_AND_COMPANY-ES202404004688

PATIENT
  Age: 57 Year
  Sex: Female

DRUGS (9)
  1. LETROZOLE [Suspect]
     Active Substance: LETROZOLE
     Indication: Breast cancer
     Route: 065
  2. ABEMACICLIB [Suspect]
     Active Substance: ABEMACICLIB
     Indication: Breast cancer
     Route: 048
     Dates: start: 20240318
  3. ABEMACICLIB [Suspect]
     Active Substance: ABEMACICLIB
     Route: 048
  4. ABEMACICLIB [Suspect]
     Active Substance: ABEMACICLIB
     Route: 048
  5. ABEMACICLIB [Suspect]
     Active Substance: ABEMACICLIB
     Route: 048
  6. ABEMACICLIB [Suspect]
     Active Substance: ABEMACICLIB
     Dosage: 200 MILLIGRAM, ONCE A DAY
     Route: 048
  7. COLLAGEN [Concomitant]
     Active Substance: COLLAGEN
     Indication: Bone disorder
     Route: 065
  8. COLLAGEN [Concomitant]
     Active Substance: COLLAGEN
     Indication: Muscle disorder
  9. COLLAGEN [Concomitant]
     Active Substance: COLLAGEN
     Indication: Arthropathy

REACTIONS (21)
  - Colitis [Recovered/Resolved]
  - Skin fissures [Recovering/Resolving]
  - Defaecation urgency [Recovering/Resolving]
  - Weight increased [Recovering/Resolving]
  - Memory impairment [Recovering/Resolving]
  - Somnolence [Recovered/Resolved]
  - Feeling abnormal [Recovering/Resolving]
  - Tumour marker increased [Recovering/Resolving]
  - Mental status changes [Recovering/Resolving]
  - Abdominal pain [Recovering/Resolving]
  - Decreased immune responsiveness [Recovering/Resolving]
  - Venous flow velocity increased [Recovering/Resolving]
  - Lung opacity [Recovering/Resolving]
  - Saliva altered [Recovering/Resolving]
  - Dry skin [Recovering/Resolving]
  - Fatigue [Recovered/Resolved]
  - Diarrhoea [Recovering/Resolving]
  - Red blood cell count decreased [Recovering/Resolving]
  - Frequent bowel movements [Recovering/Resolving]
  - Dizziness [Recovered/Resolved]
  - Alopecia [Recovering/Resolving]

NARRATIVE: CASE EVENT DATE: 20240322
